FAERS Safety Report 14761212 (Version 2)
Quarter: 2019Q1

REPORT INFORMATION
  Report Type: Report from Study
  Country: US (occurrence: US)
  Receive Date: 20180415
  Receipt Date: 20190121
  Transmission Date: 20190417
  Serious: Yes (Other)
  Sender: FDA-Public Use
  Company Number: US-TEVA-2018-US-881001

PATIENT
  Sex: Male

DRUGS (2)
  1. AUSTEDO [Suspect]
     Active Substance: DEUTETRABENAZINE
     Indication: HUNTINGTON^S DISEASE
     Dosage: SWITCH/MAINTENANCE PATIENT
     Route: 065
  2. AUSTEDO [Suspect]
     Active Substance: DEUTETRABENAZINE
     Dosage: 36 MILLIGRAM DAILY;
     Route: 065

REACTIONS (9)
  - Gait disturbance [Unknown]
  - Disease progression [Unknown]
  - Dysphagia [Unknown]
  - Thinking abnormal [Unknown]
  - Speech disorder [Unknown]
  - Dyskinesia [Unknown]
  - Loss of personal independence in daily activities [Unknown]
  - Agitation [Unknown]
  - Choking [Unknown]
